FAERS Safety Report 5085253-1 (Version None)
Quarter: 2006Q3

REPORT INFORMATION
  Report Type: 
  Country: None (occurrence: None)
  Receive Date: 20060817
  Receipt Date: 20060802
  Transmission Date: 20061208
  Serious: Yes (Life-Threatening, Hospitalization)
  Sender: FDA-Public Use
  Company Number: 228684

PATIENT
  Age: 46 Year
  Sex: Male

DRUGS (5)
  1. AVASTIN [Suspect]
     Indication: COLORECTAL CANCER METASTATIC
     Dosage: 5 MG/KG, DAYS 1 + 15, INTRAVENOUS
     Route: 042
     Dates: start: 20051115
  2. ERLOTINIB         (ERLOTINIB) [Suspect]
     Indication: COLORECTAL CANCER METASTATIC
     Dosage: 100 MG, QD, ORAL
     Route: 048
     Dates: start: 20051121
  3. ELOXATIN [Suspect]
     Indication: COLORECTAL CANCER METASTATIC
     Dosage: 85 MG/M2, DAYS 1+15, INTRAVENOUS
     Route: 042
     Dates: start: 20051115
  4. LEUCOVORIN CALCIUM [Suspect]
     Indication: COLORECTAL CANCER METASTATIC
     Dosage: 200 MG/M2, 4 PER Q28D, INTRAVENOUS
     Route: 042
     Dates: start: 20051115
  5. FLUOROURACIL [Suspect]
     Indication: COLORECTAL CANCER METASTATIC
     Dosage: 400 MG/M2, 4 PER Q28D, INTRAVENOUS
     Route: 042
     Dates: start: 20051115

REACTIONS (2)
  - CHEST PAIN [None]
  - TROPONIN I INCREASED [None]
